FAERS Safety Report 25307074 (Version 1)
Quarter: 2025Q2

REPORT INFORMATION
  Report Type: Report from Study
  Country: CN (occurrence: CN)
  Receive Date: 20250513
  Receipt Date: 20250513
  Transmission Date: 20250717
  Serious: Yes (Other)
  Sender: ROCHE
  Company Number: CN-ROCHE-10000271983

PATIENT

DRUGS (8)
  1. AVASTIN [Suspect]
     Active Substance: BEVACIZUMAB
     Indication: Metastatic neoplasm
     Route: 065
  2. RIVOCERANIB [Suspect]
     Active Substance: RIVOCERANIB
     Indication: Metastatic neoplasm
     Route: 065
  3. TEGAFUR [Suspect]
     Active Substance: TEGAFUR
     Indication: Metastatic neoplasm
     Route: 065
  4. TISLELIZUMAB [Suspect]
     Active Substance: TISLELIZUMAB
     Indication: Metastatic neoplasm
     Route: 065
  5. CAMRELIZUMAB [Suspect]
     Active Substance: CAMRELIZUMAB
     Indication: Metastatic neoplasm
     Route: 065
  6. CISPLATIN [Suspect]
     Active Substance: CISPLATIN
     Indication: Metastatic neoplasm
     Route: 065
  7. SINTILIMAB [Suspect]
     Active Substance: SINTILIMAB
     Indication: Metastatic neoplasm
     Route: 065
  8. IRINOTECAN [Suspect]
     Active Substance: IRINOTECAN
     Indication: Metastatic neoplasm
     Route: 065

REACTIONS (5)
  - Myelosuppression [Unknown]
  - Nausea [Unknown]
  - Diarrhoea [Unknown]
  - Radiation pneumonitis [Unknown]
  - Gastrointestinal inflammation [Unknown]
